FAERS Safety Report 4471229-1 (Version None)
Quarter: 2004Q4

REPORT INFORMATION
  Report Type: 
  Country: None (occurrence: None)
  Receive Date: 20041011
  Receipt Date: 20041001
  Transmission Date: 20050328
  Serious: Yes (Other)
  Sender: FDA-Public Use
  Company Number: BR-MERCK-0410BRA00056

PATIENT
  Age: 53 Year
  Sex: Female

DRUGS (4)
  1. ENALAPRIL MALEATE AND HYDROCHLOROTHIAZIDE [Concomitant]
     Route: 065
  2. ISOSORBIDE [Concomitant]
     Route: 065
  3. VIOXX [Suspect]
     Indication: PAIN
     Route: 065
     Dates: start: 20031201, end: 20040201
  4. VIOXX [Suspect]
     Route: 065
     Dates: start: 20010501, end: 20010601

REACTIONS (1)
  - MYOCARDIAL INFARCTION [None]
